FAERS Safety Report 5105443-9 (Version None)
Quarter: 2006Q3

REPORT INFORMATION
  Report Type: 
  Country: None (occurrence: None)
  Receive Date: 20060915
  Receipt Date: 20060525
  Transmission Date: 20061208
  Serious: No
  Sender: FDA-Public Use
  Company Number: US-GLAXOSMITHKLINE-A0606943A

PATIENT
  Age: 68 Year
  Sex: Male

DRUGS (9)
  1. AVANDARYL [Suspect]
     Dosage: 1TAB PER DAY
     Route: 048
     Dates: start: 20060424
  2. KEFLEX [Concomitant]
  3. ASPIRIN [Concomitant]
  4. IBUPROFEN [Concomitant]
  5. BETAGAN [Concomitant]
  6. FISH OIL [Concomitant]
  7. GLUCOSAMINE CHONDROITIN [Concomitant]
  8. BILBERRY LUTEIN [Concomitant]
  9. NIACINAMIDE [Concomitant]

REACTIONS (3)
  - BLOOD CHOLESTEROL INCREASED [None]
  - BLOOD TRIGLYCERIDES INCREASED [None]
  - PARAESTHESIA [None]
